FAERS Safety Report 4986383-2 (Version None)
Quarter: 2006Q2

REPORT INFORMATION
  Report Type: 
  Country: None (occurrence: None)
  Receive Date: 20060428
  Receipt Date: 20060420
  Transmission Date: 20061013
  Serious: Yes (Hospitalization)
  Sender: FDA-Public Use
  Company Number: BF-GLAXOSMITHKLINE-B0421703A

PATIENT
  Age: 22 Year
  Sex: Female

DRUGS (2)
  1. ALBENDAZOLE [Suspect]
     Route: 048
     Dates: start: 20060108
  2. MECTIZAN [Suspect]
     Route: 048
     Dates: start: 20060108

REACTIONS (4)
  - ABDOMINAL PAIN [None]
  - PALPITATIONS [None]
  - VERTIGO [None]
  - VOMITING [None]
